FAERS Safety Report 6861550-1 (Version None)
Quarter: 2010Q3

REPORT INFORMATION
  Report Type: 
  Country: None (occurrence: None)
  Receive Date: 20100721
  Receipt Date: 20100713
  Transmission Date: 20110219
  Serious: Yes (Hospitalization, Other)
  Sender: FDA-Public Use
  Company Number: US-ASTRAZENECA-2010SE33539

PATIENT
  Age: 45 Year
  Sex: Female
  Weight: 122.9 kg

DRUGS (6)
  1. SEROQUEL [Suspect]
     Indication: SLEEP DISORDER
     Dosage: 50 TO 100 MG DAILY
     Route: 048
     Dates: start: 20070716
  2. PREDNISONE [Concomitant]
     Indication: LUPUS NEPHRITIS
     Dates: start: 20091117
  3. ENALAPRIL HCT [Concomitant]
     Indication: HYPERTENSION
     Dates: start: 20090101
  4. ATENOLOL [Concomitant]
     Indication: BLOOD PRESSURE MANAGEMENT
     Dates: start: 20090101
  5. TRAMADOL [Concomitant]
     Indication: PAIN
     Dates: start: 20090101
  6. LORCET-HD [Concomitant]
     Indication: PAIN
     Dates: start: 20090101

REACTIONS (7)
  - ANAEMIA [None]
  - ASTHMA [None]
  - DIABETES MELLITUS INADEQUATE CONTROL [None]
  - DIABETIC NEUROPATHY [None]
  - NICOTINE DEPENDENCE [None]
  - OBESITY [None]
  - SYSTEMIC LUPUS ERYTHEMATOSUS [None]
